FAERS Safety Report 20603010 (Version 1)
Quarter: 2022Q1

REPORT INFORMATION
  Report Type: Spontaneous
  Country: US (occurrence: US)
  Receive Date: 20220316
  Receipt Date: 20220316
  Transmission Date: 20220424
  Serious: No
  Sender: FDA-Public Use
  Company Number: US-SAREPTA THERAPEUTICS INC.-SRP2021-001824

PATIENT
  Sex: Male

DRUGS (2)
  1. VYONDYS 53 [Suspect]
     Active Substance: GOLODIRSEN
     Indication: Muscular dystrophy
     Dosage: 1100 MILLIGRAM, WEEKLY
     Route: 042
     Dates: start: 20201211, end: 20211101
  2. VYONDYS 53 [Suspect]
     Active Substance: GOLODIRSEN
     Dosage: 1100 MILLIGRAM, WEEKLY
     Route: 042
     Dates: start: 20211109

REACTIONS (1)
  - Pharyngitis streptococcal [Recovered/Resolved]
